FAERS Safety Report 6246095-4 (Version None)
Quarter: 2009Q2

REPORT INFORMATION
  Report Type: 
  Country: None (occurrence: None)
  Receive Date: 20090626
  Receipt Date: 20090213
  Transmission Date: 20091009
  Serious: No
  Sender: FDA-Public Use
  Company Number: A0769345A

PATIENT
  Sex: Female
  Weight: 59.1 kg

DRUGS (1)
  1. IMITREX [Suspect]
     Indication: MIGRAINE
     Dosage: 100MG AS REQUIRED
     Route: 048
     Dates: start: 20090101

REACTIONS (3)
  - CONDITION AGGRAVATED [None]
  - HEADACHE [None]
  - SKIN REACTION [None]
